FAERS Safety Report 4424843-3 (Version None)
Quarter: 2004Q3

REPORT INFORMATION
  Report Type: 
  Country: None (occurrence: None)
  Receive Date: 20040812
  Receipt Date: 20040805
  Transmission Date: 20050211
  Serious: Yes (Death)
  Sender: FDA-Public Use
  Company Number: GB-MERCK-0408GBR00060

PATIENT
  Sex: Male

DRUGS (3)
  1. ASPIRIN [Concomitant]
     Route: 065
  2. VIOXX [Suspect]
     Indication: RHEUMATOID ARTHRITIS
     Route: 048
     Dates: start: 20040701, end: 20040701
  3. STATIN (UNSPECIFIED) [Concomitant]
     Route: 065

REACTIONS (1)
  - DEATH [None]
